FAERS Safety Report 5157131-0 (Version None)
Quarter: 2006Q4

REPORT INFORMATION
  Report Type: 
  Country: None (occurrence: None)
  Receive Date: 20061127
  Receipt Date: 20060405
  Transmission Date: 20070319
  Serious: Yes (Hospitalization)
  Sender: FDA-Public Use
  Company Number: FR-SOLVAY-00206001121

PATIENT
  Age: 65 Year
  Sex: Female

DRUGS (7)
  1. PROGESTERONE [Suspect]
     Indication: ILL-DEFINED DISORDER
     Dosage: DAILY DOSE: 100 MILLIGRAM(S)
     Route: 048
     Dates: end: 20060329
  2. ALPHAGAN [Suspect]
     Indication: ILL-DEFINED DISORDER
     Dosage: DAILY DOSE: 2 DOSAGE FORM
     Route: 047
     Dates: start: 20060101, end: 20060329
  3. TANAKAN [Suspect]
     Indication: ILL-DEFINED DISORDER
     Dosage: DAILY DOSE: 3 DOSAGE FORM
     Route: 048
     Dates: start: 20000101, end: 20060329
  4. FLECAINIDE ACETATE [Suspect]
     Indication: ILL-DEFINED DISORDER
     Dosage: DAILY DOSE: 200 MILLIGRAM(S)
     Route: 048
     Dates: start: 20030115, end: 20060329
  5. XALATAN [Suspect]
     Indication: ILL-DEFINED DISORDER
     Dosage: DAILY DOSE: 2 DOSAGE FORM
     Route: 047
     Dates: start: 20060101, end: 20060329
  6. PIROXICAM [Suspect]
     Indication: ILL-DEFINED DISORDER
     Dosage: DAILY DOSE: 2 DOSAGE FORM
     Route: 048
     Dates: start: 20060101, end: 20060329
  7. PIROXICAM [Suspect]
     Dosage: DAILY DOSE: 200 MILLIGRAM(S)
     Route: 048
     Dates: end: 20060301

REACTIONS (5)
  - BONE MARROW FAILURE [None]
  - INFLAMMATION [None]
  - PANCYTOPENIA [None]
  - PYREXIA [None]
  - TONSILLITIS [None]
